FAERS Safety Report 7035594-3 (Version None)
Quarter: 2010Q4

REPORT INFORMATION
  Report Type: 
  Country: None (occurrence: None)
  Receive Date: 20101008
  Receipt Date: 20100927
  Transmission Date: 20110411
  Serious: Yes (Other)
  Sender: FDA-Public Use
  Company Number: JP-PFIZER INC-2010121929

PATIENT

DRUGS (2)
  1. SOLU-MEDROL [Suspect]
     Indication: ASTHMA
     Dosage: UNK
  2. PREDONINE [Concomitant]
     Route: 048

REACTIONS (1)
  - CONVULSION [None]
